FAERS Safety Report 6336299-4 (Version None)
Quarter: 2009Q3

REPORT INFORMATION
  Report Type: 
  Country: None (occurrence: None)
  Receive Date: 20090901
  Receipt Date: 20090828
  Transmission Date: 20100115
  Serious: Yes (Death, Hospitalization)
  Sender: FDA-Public Use
  Company Number: DE-BAYER-200930221GPV

PATIENT
  Age: 89 Year
  Sex: Female
  Weight: 71 kg

DRUGS (9)
  1. MOXIFLOXACIN HCL [Interacting]
     Indication: PNEUMONIA
     Dosage: TOTAL DAILY DOSE: 400 MG  UNIT DOSE: 400 MG
     Route: 048
     Dates: start: 20090430, end: 20090501
  2. PANTOPRAZOLE SODIUM [Interacting]
     Indication: PROPHYLAXIS AGAINST GASTROINTESTINAL ULCER
     Dosage: TOTAL DAILY DOSE: 80 MG  UNIT DOSE: 40 MG
     Route: 048
     Dates: start: 20080101
  3. CEFOTIAM HYDROCHLORIDE [Suspect]
     Indication: PNEUMONIA
     Dosage: TOTAL DAILY DOSE: 4 G  UNIT DOSE: 2 G
     Route: 042
     Dates: start: 20090425, end: 20090429
  4. CALCILAC KT [Concomitant]
     Indication: BREAST CANCER METASTATIC
     Dosage: 400 IU COLECALCIFEROL / 500 MG CALCIUM
     Route: 048
     Dates: start: 20090409
  5. FENTANYL [Concomitant]
     Indication: BREAST CANCER METASTATIC
     Route: 062
     Dates: start: 20080101
  6. METAMIZOLE [Concomitant]
     Indication: PAIN
     Dosage: TOTAL DAILY DOSE: 120 GTT
     Route: 048
     Dates: start: 20080101
  7. METRONIDAZOLE [Concomitant]
     Indication: PNEUMONIA
     Dosage: TOTAL DAILY DOSE: 1500 MG  UNIT DOSE: 500 MG
     Route: 042
     Dates: start: 20090425, end: 20090429
  8. TORASEMIDE [Concomitant]
     Indication: RENAL FAILURE CHRONIC
     Dosage: TOTAL DAILY DOSE: 10 MG  UNIT DOSE: 10 MG
     Route: 048
     Dates: start: 20090409, end: 20090501
  9. CIPROFLAXACIN [Concomitant]
     Indication: PYREXIA
     Route: 042
     Dates: start: 20090502, end: 20090504

REACTIONS (4)
  - ANAL HAEMORRHAGE [None]
  - DIARRHOEA [None]
  - GENERAL PHYSICAL HEALTH DETERIORATION [None]
  - PSEUDOMEMBRANOUS COLITIS [None]
